FAERS Safety Report 24967913 (Version 2)
Quarter: 2025Q1

REPORT INFORMATION
  Report Type: Spontaneous
  Country: RO (occurrence: RO)
  Receive Date: 20250214
  Receipt Date: 20250321
  Transmission Date: 20250408
  Serious: Yes (Other)
  Sender: ROCHE
  Company Number: RO-ROCHE-10000202013

PATIENT
  Age: 58 Year
  Sex: Male

DRUGS (2)
  1. TECENTRIQ [Suspect]
     Active Substance: ATEZOLIZUMAB
     Indication: Transitional cell carcinoma
     Route: 042
     Dates: start: 20241205
  2. TECENTRIQ [Suspect]
     Active Substance: ATEZOLIZUMAB
     Route: 065
     Dates: start: 20250109

REACTIONS (2)
  - Anaphylactic shock [Not Recovered/Not Resolved]
  - Urinary tract infection [Not Recovered/Not Resolved]

NARRATIVE: CASE EVENT DATE: 20250109
